FAERS Safety Report 23304582 (Version 1)
Quarter: 2023Q4

REPORT INFORMATION
  Report Type: Report from Study
  Country: US (occurrence: US)
  Receive Date: 20231218
  Receipt Date: 20231218
  Transmission Date: 20240110
  Serious: Yes (Death)
  Sender: FDA-Public Use
  Company Number: US-ABBVIE-5540361

PATIENT
  Sex: Male

DRUGS (1)
  1. CREON [Suspect]
     Active Substance: PANCRELIPASE AMYLASE\PANCRELIPASE LIPASE\PANCRELIPASE PROTEASE
     Indication: Pancreatic carcinoma
     Dosage: TIME INTERVAL: 0.33333333 DAYS: 5 CAPSULE?FORM STRENGTH: 24000 UNIT
     Route: 048
     Dates: start: 202309, end: 202311

REACTIONS (4)
  - Nephropathy [Fatal]
  - Haemoglobin decreased [Fatal]
  - Renal failure [Fatal]
  - Haematotoxicity [Fatal]

NARRATIVE: CASE EVENT DATE: 20230101
